FAERS Safety Report 22173089 (Version 1)
Quarter: 2023Q2

REPORT INFORMATION
  Report Type: Spontaneous
  Country: SI (occurrence: SI)
  Receive Date: 20230404
  Receipt Date: 20230404
  Transmission Date: 20230722
  Serious: Yes (Hospitalization)
  Sender: FDA-Public Use
  Company Number: None

PATIENT
  Age: 57 Year
  Sex: Female

DRUGS (4)
  1. KEPPRA [Suspect]
     Active Substance: LEVETIRACETAM
     Indication: Epilepsy
     Dosage: 500 MILLIGRAM, 1TBL/12H
     Route: 048
  2. Plivadon [Concomitant]
     Indication: Product used for unknown indication
     Dosage: UNK
  3. Tramal 50 MG [Concomitant]
     Indication: Product used for unknown indication
     Dosage: 50 MILLIGRAM
  4. CHOLECALCIFEROL [Concomitant]
     Active Substance: CHOLECALCIFEROL
     Indication: Product used for unknown indication
     Dosage: 35 GTT DROPS, WEEKLY (QW)

REACTIONS (1)
  - Liver disorder [Recovering/Resolving]
